FAERS Safety Report 5545287-7 (Version None)
Quarter: 2007Q4

REPORT INFORMATION
  Report Type: 
  Country: None (occurrence: None)
  Receive Date: 20071211
  Receipt Date: 20071204
  Transmission Date: 20080405
  Serious: Yes (Other)
  Sender: FDA-Public Use
  Company Number: PHBS2007BR20603

PATIENT
  Age: 71 Year
  Sex: Male
  Weight: 60 kg

DRUGS (12)
  1. DIOVAN [Suspect]
     Indication: HYPERTENSION
     Dosage: 80 MG, QD
  2. DIOVAN [Suspect]
     Dosage: 160 MG/DAY
     Route: 048
  3. MONOCORTIN [Concomitant]
     Indication: HYPERTENSION
     Dosage: 20 MG/DAY
     Route: 048
  4. MONOCORTIN [Concomitant]
     Dosage: 40 MG/DAY
     Route: 048
  5. PURAN T4 [Concomitant]
     Indication: HYPERTHYROIDISM
     Route: 048
  6. ASPIRIN [Concomitant]
     Dosage: 2 TABLETS/DAY
     Route: 048
  7. LASIX [Concomitant]
     Indication: HYPERTENSION
     Dosage: 1 TABLET/DAY
     Route: 048
  8. ZOCOR [Concomitant]
     Indication: BLOOD CHOLESTEROL INCREASED
     Dosage: 40 MG, QD
     Route: 048
  9. UNOPROST [Concomitant]
     Dosage: 2 MG, QD
     Route: 048
  10. DIPYRONE [Concomitant]
     Indication: PAIN
     Route: 048
  11. ALLOPURINOL [Concomitant]
     Indication: BLOOD CHOLESTEROL INCREASED
     Dosage: 300MG, QD
  12. ATENOLOL [Concomitant]
     Indication: HYPERTENSION
     Dosage: 100 MG/DAY
     Route: 048

REACTIONS (4)
  - BACTERIAL INFECTION [None]
  - BLOOD PRESSURE INCREASED [None]
  - DRUG INEFFECTIVE [None]
  - RENAL DISORDER [None]
